FAERS Safety Report 20022308 (Version 9)
Quarter: 2022Q3

REPORT INFORMATION
  Report Type: Spontaneous
  Country: CA (occurrence: CA)
  Receive Date: 20211102
  Receipt Date: 20220915
  Transmission Date: 20221027
  Serious: Yes (Other)
  Sender: FDA-Public Use
  Company Number: CA-CELLTRION INC.-2021CA013465

PATIENT

DRUGS (19)
  1. INFLECTRA [Suspect]
     Active Substance: INFLIXIMAB-DYYB
     Indication: Crohn^s disease
     Dosage: UNK
     Route: 042
  2. INFLECTRA [Suspect]
     Active Substance: INFLIXIMAB-DYYB
     Dosage: 500 MG EVERY 8 WEEKS
     Route: 042
     Dates: start: 20210909
  3. INFLECTRA [Suspect]
     Active Substance: INFLIXIMAB-DYYB
     Dosage: 500 MG EVERY 8 WEEKS
     Route: 042
     Dates: start: 20210923
  4. INFLECTRA [Suspect]
     Active Substance: INFLIXIMAB-DYYB
     Dosage: 500 MG EVERY 8 WEEKS
     Route: 042
     Dates: start: 20211021
  5. INFLECTRA [Suspect]
     Active Substance: INFLIXIMAB-DYYB
     Dosage: 500 MG EVERY 8 WEEKS
     Route: 042
     Dates: start: 20211216
  6. INFLECTRA [Suspect]
     Active Substance: INFLIXIMAB-DYYB
     Dosage: 500 MG EVERY 8 WEEKS
     Route: 042
     Dates: start: 20220210
  7. INFLECTRA [Suspect]
     Active Substance: INFLIXIMAB-DYYB
     Dosage: 500 MG EVERY 8 WEEKS
     Route: 042
     Dates: start: 20220408
  8. INFLECTRA [Suspect]
     Active Substance: INFLIXIMAB-DYYB
     Dosage: 500 MG EVERY 8 WEEKS
     Route: 042
     Dates: start: 20220408
  9. INFLECTRA [Suspect]
     Active Substance: INFLIXIMAB-DYYB
     Dosage: 500 MG EVERY 8 WEEKS
     Route: 042
     Dates: start: 20220615
  10. INFLECTRA [Suspect]
     Active Substance: INFLIXIMAB-DYYB
     Dosage: 500 MG EVERY 8 WEEKS
     Route: 042
     Dates: start: 20220628
  11. INFLECTRA [Suspect]
     Active Substance: INFLIXIMAB-DYYB
     Dosage: 500 MG EVERY 8 WEEKS
     Route: 042
     Dates: start: 20220628
  12. INFLECTRA [Suspect]
     Active Substance: INFLIXIMAB-DYYB
     Dosage: 500 MG EVERY 8 WEEKS
     Route: 042
     Dates: start: 20220831
  13. MEDROXYPROGESTERONE ACETATE [Concomitant]
     Active Substance: MEDROXYPROGESTERONE ACETATE
     Indication: Endometriosis
     Dosage: UNK, DAILY (2 DAILY PO)
     Route: 048
  14. BILASTINE [Concomitant]
     Active Substance: BILASTINE
     Indication: Hypersensitivity
     Dosage: UNK, 1X/DAY
     Route: 048
     Dates: start: 202206
  15. DEPO-PROVERA [Concomitant]
     Active Substance: MEDROXYPROGESTERONE ACETATE
     Indication: Endometriosis
     Dosage: UNK, 1 INJECTION EVERY 3 MONTHS
     Route: 030
  16. NORLUTATE [Concomitant]
     Active Substance: NORETHINDRONE ACETATE
     Indication: Endometriosis
     Dosage: UNK, 1X/DAY
     Route: 048
     Dates: start: 202206
  17. IPRATROPIUM [Concomitant]
     Active Substance: IPRATROPIUM
     Indication: Pneumonitis
     Dosage: 20 UG, 4X/DAY (QID)
     Route: 048
  18. CETIRIZINE HYDROCHLORIDE [Concomitant]
     Active Substance: CETIRIZINE HYDROCHLORIDE
     Indication: Hypersensitivity
     Dosage: UNK, AS NEEDED
     Route: 048
  19. ALBUTEROL SULFATE [Concomitant]
     Active Substance: ALBUTEROL SULFATE
     Indication: Pneumonitis
     Dosage: UNK, 4X/DAY (2 PUFFS)
     Route: 048

REACTIONS (41)
  - Ear infection bacterial [Recovered/Resolved]
  - Inappropriate schedule of product administration [Unknown]
  - Therapeutic response delayed [Unknown]
  - Therapeutic product effect variable [Unknown]
  - Ear infection [Not Recovered/Not Resolved]
  - Acne cystic [Unknown]
  - Condition aggravated [Unknown]
  - Fall [Unknown]
  - Limb injury [Unknown]
  - Peripheral swelling [Unknown]
  - Pain in extremity [Unknown]
  - Condition aggravated [Recovering/Resolving]
  - Mouth swelling [Recovered/Resolved]
  - Swollen tongue [Recovered/Resolved]
  - Dyspnoea [Recovered/Resolved]
  - Endometriosis [Recovered/Resolved]
  - Condition aggravated [Recovered/Resolved]
  - Headache [Unknown]
  - Diplopia [Recovered/Resolved]
  - Visual impairment [Not Recovered/Not Resolved]
  - Weight increased [Unknown]
  - Migraine [Not Recovered/Not Resolved]
  - Gastrooesophageal reflux disease [Unknown]
  - Oral mucosal erythema [Recovered/Resolved]
  - Tongue erythema [Recovered/Resolved]
  - Pharyngeal erythema [Recovered/Resolved]
  - Pharyngeal swelling [Recovered/Resolved]
  - Generalised oedema [Recovered/Resolved]
  - Abdominal pain [Recovered/Resolved]
  - Back pain [Recovered/Resolved]
  - Diplopia [Recovered/Resolved]
  - Influenza [Unknown]
  - Pyrexia [Not Recovered/Not Resolved]
  - Cough [Not Recovered/Not Resolved]
  - Middle ear effusion [Not Recovered/Not Resolved]
  - Concussion [Unknown]
  - Photophobia [Not Recovered/Not Resolved]
  - Sinusitis [Unknown]
  - Upper-airway cough syndrome [Unknown]
  - Ear pain [Recovered/Resolved]
  - Ear inflammation [Not Recovered/Not Resolved]

NARRATIVE: CASE EVENT DATE: 20210101
